FAERS Safety Report 8876199 (Version 1)
Quarter: 2012Q4

REPORT INFORMATION
  Report Type: 
  Country: IL (occurrence: IL)
  Receive Date: 20121023
  Receipt Date: 20121023
  Transmission Date: 20130627
  Serious: Yes (Hospitalization)
  Sender: FDA-Public Use
  Company Number: IL-WATSON-2012-18063

PATIENT
  Age: 58 Year
  Sex: Male

DRUGS (3)
  1. OMEPRAZOLE (UNKNOWN) [Suspect]
     Indication: PEPTIC ULCER
     Route: 065
  2. CLARITHROMYCIN (UNKNOWN) [Suspect]
     Indication: PEPTIC ULCER
     Route: 065
  3. CARBAMAZEPINE [Suspect]
     Indication: GRAND MAL CONVULSION
     Route: 065

REACTIONS (4)
  - Toxicity to various agents [Recovered/Resolved]
  - Drug interaction [Recovered/Resolved]
  - Ataxia [Recovered/Resolved]
  - Vertigo [Recovered/Resolved]
